FAERS Safety Report 8548883-8 (Version None)
Quarter: 2012Q3

REPORT INFORMATION
  Report Type: 
  Country: None (occurrence: None)
  Receive Date: 20120730
  Receipt Date: 20120725
  Transmission Date: 20120928
  Serious: Yes (Other)
  Sender: FDA-Public Use
  Company Number: PHHY2012BR064797

PATIENT
  Sex: Female
  Weight: 101.5 kg

DRUGS (1)
  1. DIOVAN [Suspect]
     Indication: HYPERTENSION
     Dosage: 1 DF, PER DAY
     Dates: start: 20120530

REACTIONS (3)
  - ERYSIPELAS [None]
  - FEELING HOT [None]
  - OEDEMA PERIPHERAL [None]
